FAERS Safety Report 10436429 (Version 2)
Quarter: 2014Q3

REPORT INFORMATION
  Report Type: Spontaneous
  Country: NZ (occurrence: NZ)
  Receive Date: 20140908
  Receipt Date: 20140909
  Transmission Date: 20150326
  Serious: Yes (Other)
  Sender: FDA-Public Use
  Company Number: NZ-PFIZER INC-2014244975

PATIENT
  Sex: Female

DRUGS (2)
  1. CELEBREX [Suspect]
     Active Substance: CELECOXIB
     Indication: BURSITIS
     Dosage: UNK
     Dates: start: 20140712, end: 20140823
  2. PANADOL [Concomitant]
     Active Substance: ACETAMINOPHEN

REACTIONS (13)
  - Bursitis [Unknown]
  - Drug withdrawal syndrome [Unknown]
  - Neoplasm malignant [Unknown]
  - Pelvic pain [Unknown]
  - Dysuria [Unknown]
  - Hypertension [Unknown]
  - Abdominal pain [Unknown]
  - Blood urine present [Unknown]
  - Renal impairment [Unknown]
  - Hypersensitivity [Unknown]
  - Malaise [Unknown]
  - Body temperature increased [Unknown]
  - Joint swelling [Unknown]
